FAERS Safety Report 20741831 (Version 1)
Quarter: 2022Q2

REPORT INFORMATION
  Report Type: Spontaneous
  Country: US (occurrence: None)
  Receive Date: 20220423
  Receipt Date: 20220423
  Transmission Date: 20220721
  Serious: Yes (Hospitalization)
  Sender: FDA-Public Use
  Company Number: US-ROCHE-3080782

PATIENT
  Age: 75 Year
  Sex: Male

DRUGS (1)
  1. ESBRIET [Suspect]
     Active Substance: PIRFENIDONE
     Indication: Idiopathic pulmonary fibrosis
     Dosage: 801MG THREE TIMES DAILY
     Route: 048
     Dates: start: 20220105

REACTIONS (1)
  - Oxygen saturation decreased [Unknown]

NARRATIVE: CASE EVENT DATE: 20220419
